FAERS Safety Report 9668095 (Version 3)
Quarter: 2014Q1

REPORT INFORMATION
  Report Type: Spontaneous
  Country: GB (occurrence: GB)
  Receive Date: 20131104
  Receipt Date: 20140310
  Transmission Date: 20141002
  Serious: Yes (Other)
  Sender: FDA-Public Use
  Company Number: ALCN2013GB005508

PATIENT
  Age: 81 Year
  Sex: Male

DRUGS (8)
  1. AZOPT [Suspect]
     Indication: INTRAOCULAR PRESSURE INCREASED
     Dosage: 1 GTT, BID
     Route: 047
     Dates: start: 201205, end: 201208
  2. AZOPT [Suspect]
     Indication: GLAUCOMA
  3. AZARGA [Suspect]
     Indication: INTRAOCULAR PRESSURE INCREASED
     Dosage: 1 GTT, BID
     Route: 047
     Dates: start: 20120918, end: 201212
  4. AZARGA [Suspect]
     Indication: GLAUCOMA
  5. ATENOLOL [Concomitant]
     Indication: HYPERTENSION
     Dosage: 50 MG, QD
     Dates: start: 1960
  6. AMLODIPINE [Concomitant]
     Indication: HYPERTENSION
     Dosage: 5 MG, QD
     Dates: start: 1980
  7. CANDESARTAN [Concomitant]
     Indication: HYPERTENSION
     Dosage: 16 MG, QD
     Dates: start: 1980
  8. TAMSULOSIN [Concomitant]
     Indication: LOWER URINARY TRACT SYMPTOMS
     Dosage: UNK
     Dates: start: 201206

REACTIONS (12)
  - Raynaud^s phenomenon [Not Recovered/Not Resolved]
  - Dyspnoea [Not Recovered/Not Resolved]
  - Sneezing [Not Recovered/Not Resolved]
  - Flatulence [Not Recovered/Not Resolved]
  - Photophobia [Not Recovered/Not Resolved]
  - Nasal congestion [Not Recovered/Not Resolved]
  - Nasal dryness [Not Recovered/Not Resolved]
  - Eyelid margin crusting [Not Recovered/Not Resolved]
  - Vision blurred [Not Recovered/Not Resolved]
  - Lacrimation decreased [Not Recovered/Not Resolved]
  - Ocular discomfort [Not Recovered/Not Resolved]
  - Dry eye [Not Recovered/Not Resolved]
